FAERS Safety Report 25236683 (Version 1)
Quarter: 2025Q2

REPORT INFORMATION
  Report Type: Report from Study
  Country: JP (occurrence: JP)
  Receive Date: 20250424
  Receipt Date: 20250424
  Transmission Date: 20250717
  Serious: Yes (Death)
  Sender: SHIONOGI
  Company Number: JP-shionogi-202500004295

PATIENT
  Age: 74 Year
  Sex: Male
  Weight: 81 kg

DRUGS (5)
  1. CEFIDEROCOL [Suspect]
     Active Substance: CEFIDEROCOL
     Indication: Pneumonia
     Route: 041
     Dates: start: 20241118, end: 20241212
  2. ZERBAXA [Concomitant]
     Active Substance: CEFTOLOZANE SULFATE\TAZOBACTAM SODIUM
     Indication: Pneumonia
     Route: 065
     Dates: start: 20241013, end: 20241111
  3. VANCOMYCIN HYDROCHLORIDE [Concomitant]
     Active Substance: VANCOMYCIN HYDROCHLORIDE
     Indication: Pneumonia
     Route: 048
     Dates: start: 20241031, end: 20241127
  4. TEICOPLANIN [Concomitant]
     Active Substance: TEICOPLANIN
     Indication: Pneumonia
     Route: 065
     Dates: start: 20241125, end: 20241220
  5. LINEZOLID [Concomitant]
     Active Substance: LINEZOLID
     Indication: Pneumonia
     Route: 065
     Dates: start: 20241130, end: 20241202

REACTIONS (1)
  - Multiple organ dysfunction syndrome [Fatal]
